FAERS Safety Report 5189907-8 (Version None)
Quarter: 2006Q4

REPORT INFORMATION
  Report Type: 
  Country: None (occurrence: None)
  Receive Date: 20061215
  Receipt Date: 20061205
  Transmission Date: 20070319
  Serious: Yes (Hospitalization)
  Sender: FDA-Public Use
  Company Number: 2006151041

PATIENT
  Age: 54 Year
  Sex: Female

DRUGS (2)
  1. CELEBREX [Suspect]
     Indication: BACK PAIN
     Dosage: ORAL
     Route: 048
  2. CELEBREX [Suspect]
     Indication: BONE PAIN
     Dosage: ORAL
     Route: 048

REACTIONS (5)
  - BILIARY DILATATION [None]
  - CAMPYLOBACTER INFECTION [None]
  - COLITIS [None]
  - GASTRODUODENITIS [None]
  - PLEURAL EFFUSION [None]
